FAERS Safety Report 7339711-7 (Version None)
Quarter: 2011Q1

REPORT INFORMATION
  Report Type: 
  Country: None (occurrence: None)
  Receive Date: 20110309
  Receipt Date: 20110228
  Transmission Date: 20110831
  Serious: Yes (Hospitalization, Disabling, Other)
  Sender: FDA-Public Use
  Company Number: US-ELI_LILLY_AND_COMPANY-US201103000593

PATIENT
  Sex: Female

DRUGS (3)
  1. HUMALOG [Suspect]
     Indication: DIABETES MELLITUS
     Dosage: 7 U, 3/D
     Dates: start: 20040101
  2. GLIPIZIDE [Concomitant]
     Dosage: 5 MG, 2/D
  3. LANTUS [Concomitant]
     Dosage: 24 MG, UNK

REACTIONS (6)
  - MUSCULOSKELETAL PAIN [None]
  - BREAST CANCER [None]
  - HEPATIC CIRRHOSIS [None]
  - FALL [None]
  - WRONG DRUG ADMINISTERED [None]
  - UPPER LIMB FRACTURE [None]
